FAERS Safety Report 25215492 (Version 1)
Quarter: 2025Q2

REPORT INFORMATION
  Report Type: Spontaneous
  Country: US (occurrence: US)
  Receive Date: 20250418
  Receipt Date: 20250418
  Transmission Date: 20250717
  Serious: No
  Sender: Phathom Pharmaceuticals
  Company Number: US-PHATHOM PHARMACEUTICALS INC.-2025PHT00002

PATIENT
  Age: 74 Year
  Sex: Female

DRUGS (4)
  1. VOQUEZNA [Suspect]
     Active Substance: VONOPRAZAN FUMARATE
     Indication: Oesophageal disorder
     Dosage: 20 MG, 1X/DAY
     Route: 048
     Dates: start: 20241114, end: 20241230
  2. VOQUEZNA [Suspect]
     Active Substance: VONOPRAZAN FUMARATE
     Indication: Gastritis
  3. IBSRELA [Concomitant]
     Active Substance: TENAPANOR HYDROCHLORIDE
  4. LINZESS [Concomitant]
     Active Substance: LINACLOTIDE

REACTIONS (4)
  - Palpitations [Unknown]
  - Dizziness [Unknown]
  - Nausea [Unknown]
  - Drug ineffective [Recovered/Resolved]

NARRATIVE: CASE EVENT DATE: 20240101
